FAERS Safety Report 4352074-4 (Version None)
Quarter: 2004Q2

REPORT INFORMATION
  Report Type: 
  Country: None (occurrence: None)
  Receive Date: 20040429
  Receipt Date: 20040315
  Transmission Date: 20050107
  Serious: No
  Sender: FDA-Public Use
  Company Number: 2004-113311-NL

PATIENT
  Age: 27 Year
  Sex: Female
  Weight: 55.8 kg

DRUGS (4)
  1. NUVARING [Suspect]
     Dosage: DF DAILY VAGINAL
     Route: 067
     Dates: start: 20030101, end: 20030126
  2. MINOCYCLINE HCL [Concomitant]
  3. CVS BRAND YEAST INFECTION CREAM [Concomitant]
  4. DIFLUCAN [Concomitant]

REACTIONS (3)
  - DEVICE FAILURE [None]
  - FUNGAL INFECTION [None]
  - MEDICAL DEVICE DISCOMFORT [None]
